FAERS Safety Report 8256896-9 (Version None)
Quarter: 2012Q1

REPORT INFORMATION
  Report Type: 
  Country: None (occurrence: None)
  Receive Date: 20120330
  Receipt Date: 20120330
  Transmission Date: 20120608
  Serious: Yes (Other)
  Sender: FDA-Public Use
  Company Number: None

PATIENT
  Age: 57 Year
  Sex: Female
  Weight: 68.2 kg

DRUGS (1)
  1. KETOCONAZOLE [Suspect]
     Indication: DANDRUFF
     Dosage: EVERY 10 DAYS OR SO SHAMPOO
     Dates: start: 20111006

REACTIONS (3)
  - CHEMICAL INJURY [None]
  - PRURITUS [None]
  - SKIN EXFOLIATION [None]
